FAERS Safety Report 6636875-5 (Version None)
Quarter: 2010Q1

REPORT INFORMATION
  Report Type: 
  Country: None (occurrence: None)
  Receive Date: 20100301
  Receipt Date: 20091209
  Transmission Date: 20100710
  Serious: Yes (Hospitalization)
  Sender: FDA-Public Use
  Company Number: RB-26582-2009

PATIENT
  Sex: Male

DRUGS (1)
  1. BUPRENEX [Suspect]
     Indication: PAIN
     Dosage: 0.3 MG QID INTRAVENOUS
     Route: 042

REACTIONS (1)
  - PAIN [None]
